FAERS Safety Report 24377579 (Version 1)
Quarter: 2024Q3

REPORT INFORMATION
  Report Type: Report from Study
  Country: CA (occurrence: CA)
  Receive Date: 20240930
  Receipt Date: 20240930
  Transmission Date: 20241016
  Serious: Yes (Death)
  Sender: DR REDDYS
  Company Number: CA-DRL-USA-CLI/CAN/24/0014033

PATIENT
  Age: 87 Year
  Sex: Female

DRUGS (4)
  1. ZOLEDRONIC ACID [Suspect]
     Active Substance: ZOLEDRONIC ACID
     Indication: Osteoporosis
     Dosage: STRENGTH: 5MG/100ML
     Route: 065
     Dates: start: 20200707
  2. ZOLEDRONIC ACID [Suspect]
     Active Substance: ZOLEDRONIC ACID
     Dosage: STRENGTH: 5MG/100ML
     Route: 065
     Dates: start: 20210726
  3. ZOLEDRONIC ACID [Suspect]
     Active Substance: ZOLEDRONIC ACID
     Dosage: STRENGTH: 5MG/100ML
     Route: 065
     Dates: start: 20220929
  4. ZOLEDRONIC ACID [Suspect]
     Active Substance: ZOLEDRONIC ACID
     Dosage: STRENGTH: 5MG/100ML
     Route: 065
     Dates: start: 20230929

REACTIONS (1)
  - Death [Fatal]
